FAERS Safety Report 14441948 (Version 3)
Quarter: 2018Q1

REPORT INFORMATION
  Report Type: Spontaneous
  Country: CA (occurrence: CA)
  Receive Date: 20180125
  Receipt Date: 20180220
  Transmission Date: 20180509
  Serious: Yes (Hospitalization, Other)
  Sender: FDA-Public Use
  Company Number: CA-IMPAX LABORATORIES, INC-2018-IPXL-00231

PATIENT
  Age: 13 Year
  Sex: Male

DRUGS (2)
  1. ALBENZA [Suspect]
     Active Substance: ALBENDAZOLE
     Indication: ECHINOCOCCIASIS
     Dosage: 400 MG, TWICE DAILY
     Route: 048
  2. ALBENZA [Suspect]
     Active Substance: ALBENDAZOLE
     Dosage: 400 MG, TWICE DAILY
     Route: 048

REACTIONS (2)
  - Oedema [Recovered/Resolved]
  - Seizure [Recovered/Resolved]

NARRATIVE: CASE EVENT DATE: 2017
